FAERS Safety Report 7783023-4 (Version None)
Quarter: 2011Q3

REPORT INFORMATION
  Report Type: 
  Country: None (occurrence: None)
  Receive Date: 20110928
  Receipt Date: 20110924
  Transmission Date: 20111222
  Serious: Yes (Other)
  Sender: FDA-Public Use
  Company Number: US-PFIZER INC-2011228550

PATIENT
  Sex: Male

DRUGS (1)
  1. CHANTIX [Suspect]
     Dosage: UNK
     Route: 048
     Dates: start: 20110801

REACTIONS (8)
  - HOSTILITY [None]
  - ANXIETY [None]
  - ANGER [None]
  - AGGRESSION [None]
  - SUICIDAL IDEATION [None]
  - PARANOIA [None]
  - DEPRESSED MOOD [None]
  - FEELING ABNORMAL [None]
